FAERS Safety Report 19126776 (Version 2)
Quarter: 2021Q2

REPORT INFORMATION
  Report Type: Spontaneous
  Country: JP (occurrence: JP)
  Receive Date: 20210412
  Receipt Date: 20210614
  Transmission Date: 20210717
  Serious: Yes (Other)
  Sender: FDA-Public Use
  Company Number: JP-UCBSA-2021016698

PATIENT

DRUGS (1)
  1. E KEPPRA [Suspect]
     Active Substance: LEVETIRACETAM
     Indication: EPILEPSY
     Dosage: UNK
     Route: 048
     Dates: start: 20210311

REACTIONS (8)
  - Thirst [Unknown]
  - Urine output increased [Unknown]
  - Speech disorder [Unknown]
  - Musculoskeletal stiffness [Unknown]
  - Salivary hypersecretion [Unknown]
  - Aggression [Unknown]
  - Personality change [Unknown]
  - Depressed level of consciousness [Unknown]
